FAERS Safety Report 17243744 (Version 1)
Quarter: 2020Q1

REPORT INFORMATION
  Report Type: Spontaneous
  Country: US (occurrence: US)
  Receive Date: 20200107
  Receipt Date: 20200107
  Transmission Date: 20200409
  Serious: No
  Sender: FDA-Public Use
  Company Number: US-ROCHE-2308226

PATIENT
  Age: 32 Year
  Sex: Female

DRUGS (3)
  1. STREPTODORNASE;STREPTOKINASE [Concomitant]
     Indication: PRODUCT USED FOR UNKNOWN INDICATION
     Route: 034
  2. ACTILYSE [Suspect]
     Active Substance: ALTEPLASE
     Indication: INFECTIOUS PLEURAL EFFUSION
     Route: 034
  3. ACTILYSE [Suspect]
     Active Substance: ALTEPLASE
     Route: 034

REACTIONS (1)
  - Pregnancy [Unknown]
